FAERS Safety Report 5177200-9 (Version None)
Quarter: 2006Q4

REPORT INFORMATION
  Report Type: 
  Country: None (occurrence: None)
  Receive Date: 20061207
  Receipt Date: 20061127
  Transmission Date: 20070319
  Serious: Yes (Other)
  Sender: FDA-Public Use
  Company Number: 2006146891

PATIENT
  Sex: Male

DRUGS (1)
  1. EPANUTIN [Suspect]
     Indication: EPILEPSY

REACTIONS (5)
  - ANAEMIA [None]
  - DYSPNOEA [None]
  - NEOPLASM MALIGNANT [None]
  - PHARMACEUTICAL PRODUCT COMPLAINT [None]
  - SOMNOLENCE [None]
